FAERS Safety Report 17134317 (Version 1)
Quarter: 2019Q4

REPORT INFORMATION
  Report Type: Spontaneous
  Country: US (occurrence: US)
  Receive Date: 20191118
  Receipt Date: 20191118
  Transmission Date: 20200122
  Serious: Yes (Other)
  Sender: FDA-Public Use
  Company Number: None

PATIENT
  Age: 62 Year
  Sex: Female

DRUGS (27)
  1. ALBUTEROL. [Concomitant]
     Active Substance: ALBUTEROL
  2. AZITHROMYCIN ANHYDROUS. [Concomitant]
     Active Substance: AZITHROMYCIN ANHYDROUS
  3. CALCITRIOL. [Concomitant]
     Active Substance: CALCITRIOL
  4. LYRICA [Concomitant]
     Active Substance: PREGABALIN
  5. PREGABALIN. [Concomitant]
     Active Substance: PREGABALIN
  6. WIXELA INHUB [Concomitant]
     Active Substance: FLUTICASONE PROPIONATE\SALMETEROL XINAFOATE
  7. ORENCIA [Suspect]
     Active Substance: ABATACEPT
     Indication: IMMUNODEFICIENCY COMMON VARIABLE
     Route: 058
     Dates: start: 20180126
  8. FOLIC ACID. [Concomitant]
     Active Substance: FOLIC ACID
  9. LEVOTHYROXIN [Concomitant]
     Active Substance: LEVOTHYROXINE
  10. MATZIM [Concomitant]
     Active Substance: DILTIAZEM
  11. CYCLOBENZAPR [Concomitant]
     Active Substance: CYCLOBENZAPRINE
  12. ISOSORB MONO [Concomitant]
     Active Substance: ISOSORBIDE MONONITRATE
  13. PANTOPRAZOLE [Concomitant]
     Active Substance: PANTOPRAZOLE
  14. POT CHLORIDE [Concomitant]
     Active Substance: POTASSIUM CHLORIDE
  15. PROLENSA [Concomitant]
     Active Substance: BROMFENAC SODIUM
  16. SUMATRIPTAN. [Concomitant]
     Active Substance: SUMATRIPTAN
  17. FUROSEMIDE. [Concomitant]
     Active Substance: FUROSEMIDE
  18. LEFLUNOMIDE. [Concomitant]
     Active Substance: LEFLUNOMIDE
  19. MOXIFLOXACIN. [Concomitant]
     Active Substance: MOXIFLOXACIN
  20. ESTRADIOL. [Concomitant]
     Active Substance: ESTRADIOL
  21. EZETIMIBE. [Concomitant]
     Active Substance: EZETIMIBE
  22. PREDNISOLONE. [Concomitant]
     Active Substance: PREDNISOLONE
  23. DILTIAZEM. [Concomitant]
     Active Substance: DILTIAZEM
  24. TRAMADOL. [Concomitant]
     Active Substance: TRAMADOL
  25. GLIMEPIRIDE. [Concomitant]
     Active Substance: GLIMEPIRIDE
  26. METOPROLOL TARTRATE. [Concomitant]
     Active Substance: METOPROLOL TARTRATE
  27. MONTELUKAST [Concomitant]
     Active Substance: MONTELUKAST SODIUM

REACTIONS (2)
  - Sinusitis [None]
  - Cataract operation [None]

NARRATIVE: CASE EVENT DATE: 20191028
